FAERS Safety Report 19299799 (Version 1)
Quarter: 2021Q2

REPORT INFORMATION
  Report Type: Spontaneous
  Country: ES (occurrence: ES)
  Receive Date: 20210524
  Receipt Date: 20210524
  Transmission Date: 20210717
  Serious: Yes (Other)
  Sender: FDA-Public Use
  Company Number: ES-CANTON LABORATORIES, LLC-2111898

PATIENT
  Age: 83 Year
  Sex: Female

DRUGS (10)
  1. VIDESIL [Concomitant]
     Route: 048
  2. NAPROSYN [Suspect]
     Active Substance: NAPROXEN
     Indication: ROTATOR CUFF SYNDROME
     Route: 048
     Dates: start: 20210506, end: 20210506
  3. DOLOCATIL [Concomitant]
     Active Substance: ACETAMINOPHEN
     Route: 065
  4. SEROXAT [Concomitant]
     Active Substance: PAROXETINE HYDROCHLORIDE
     Route: 065
  5. SIMVASTATINA [Concomitant]
     Active Substance: SIMVASTATIN
     Route: 065
  6. RELVAR ELLIPTA [Concomitant]
     Active Substance: FLUTICASONE FUROATE\VILANTEROL TRIFENATATE
     Route: 065
  7. CORDIPLAST [Concomitant]
  8. METFORMINA [Concomitant]
     Active Substance: METFORMIN HYDROCHLORIDE
     Route: 065
  9. TORASEMIDA [Concomitant]
     Active Substance: TORSEMIDE
     Route: 065
  10. NEXIUM MUPS [Concomitant]
     Active Substance: ESOMEPRAZOLE
     Route: 048

REACTIONS (2)
  - Tongue oedema [Unknown]
  - Erythema [Unknown]

NARRATIVE: CASE EVENT DATE: 20210506
